FAERS Safety Report 19704973 (Version 2)
Quarter: 2023Q2

REPORT INFORMATION
  Report Type: Spontaneous
  Country: GB (occurrence: GB)
  Receive Date: 20210816
  Receipt Date: 20230511
  Transmission Date: 20230722
  Serious: Yes (Other)
  Sender: FDA-Public Use
  Company Number: None

PATIENT
  Age: 49 Year
  Sex: Female

DRUGS (6)
  1. CLOPIDOGREL [Suspect]
     Active Substance: CLOPIDOGREL BISULFATE
     Indication: Acute myocardial infarction
     Dosage: 75 MG
     Route: 065
     Dates: start: 201904, end: 201909
  2. WARFARIN [Suspect]
     Active Substance: WARFARIN
     Indication: Cerebrovascular accident
     Dosage: UNK
     Route: 065
     Dates: start: 202002
  3. ASPIRIN [Suspect]
     Active Substance: ASPIRIN
     Indication: Acute myocardial infarction
     Dosage: 75 MG
     Route: 065
     Dates: start: 201904, end: 202003
  4. RAMIPRIL [Suspect]
     Active Substance: RAMIPRIL
     Indication: Myocardial infarction
     Dosage: 2.5 MG, QD
     Route: 065
     Dates: start: 201904, end: 201907
  5. ATORVASTATIN [Suspect]
     Active Substance: ATORVASTATIN
     Indication: Myocardial infarction
     Dosage: 80 MG
     Route: 065
     Dates: start: 201904, end: 201907
  6. BISOPROLOL [Suspect]
     Active Substance: BISOPROLOL
     Indication: Cerebrovascular accident
     Dosage: 2.5 MG, QD
     Route: 065
     Dates: start: 201909

REACTIONS (3)
  - Condition aggravated [Unknown]
  - Heavy menstrual bleeding [Unknown]
  - Anaemia [Unknown]
